FAERS Safety Report 6760448-7 (Version None)
Quarter: 2010Q2

REPORT INFORMATION
  Report Type: 
  Country: None (occurrence: None)
  Receive Date: 20100604
  Receipt Date: 20100524
  Transmission Date: 20101027
  Serious: Yes (Other)
  Sender: FDA-Public Use
  Company Number: 2010AP001072

PATIENT
  Age: 76 Year
  Sex: Female

DRUGS (1)
  1. OMEPRAZOLE [Suspect]
     Indication: GASTROOESOPHAGEAL REFLUX DISEASE

REACTIONS (5)
  - CHRONIC OBSTRUCTIVE PULMONARY DISEASE [None]
  - FATIGUE [None]
  - HYPOCALCAEMIA [None]
  - HYPOMAGNESAEMIA [None]
  - PARAESTHESIA [None]
